FAERS Safety Report 15576181 (Version 1)
Quarter: 2018Q4

REPORT INFORMATION
  Report Type: Spontaneous
  Country: HR (occurrence: HR)
  Receive Date: 20181101
  Receipt Date: 20181101
  Transmission Date: 20190205
  Serious: Yes (Death, Other)
  Sender: FDA-Public Use
  Company Number: HR-ASTRAZENECA-2018SF41440

PATIENT
  Age: 47 Year
  Sex: Female

DRUGS (4)
  1. IRESSA [Suspect]
     Active Substance: GEFITINIB
     Indication: LUNG NEOPLASM MALIGNANT
     Route: 048
     Dates: start: 201505
  2. PAMIDRONATE [Concomitant]
     Active Substance: PAMIDRONATE DISODIUM
  3. RADIOTHERAPY [Concomitant]
     Active Substance: RADIATION THERAPY
  4. CISPLATIN. [Concomitant]
     Active Substance: CISPLATIN

REACTIONS (6)
  - Dermatitis acneiform [Unknown]
  - Metastases to central nervous system [Unknown]
  - Death [Fatal]
  - Radiation pneumonitis [Unknown]
  - Generalised tonic-clonic seizure [Unknown]
  - Malignant neoplasm progression [Unknown]

NARRATIVE: CASE EVENT DATE: 20180901
